FAERS Safety Report 16858967 (Version 1)
Quarter: 2019Q3

REPORT INFORMATION
  Report Type: Spontaneous
  Country: US (occurrence: US)
  Receive Date: 20190926
  Receipt Date: 20190926
  Transmission Date: 20191005
  Serious: Yes (Hospitalization, Other)
  Sender: FDA-Public Use
  Company Number: PHHY2019US217487

PATIENT
  Age: 58 Year
  Sex: Male

DRUGS (1)
  1. TRIAMCINOLONE [Suspect]
     Active Substance: TRIAMCINOLONE
     Indication: KELOID SCAR
     Dosage: UNK (MULTIPLE ROUNDS)
     Route: 026

REACTIONS (5)
  - Product use in unapproved indication [Unknown]
  - Blood glucose increased [Unknown]
  - Disease recurrence [Unknown]
  - Keloid scar [Unknown]
  - Drug ineffective [Unknown]
